FAERS Safety Report 10169116 (Version 1)
Quarter: 2014Q2

REPORT INFORMATION
  Report Type: Spontaneous
  Country: US (occurrence: None)
  Receive Date: 20140512
  Receipt Date: 20140512
  Transmission Date: 20141212
  Serious: No
  Sender: FDA-Public Use
  Company Number: None

PATIENT
  Age: 71 Year
  Sex: Male
  Weight: 56.09 kg

DRUGS (2)
  1. BENDAMUSTINE HYDROCHLORIDE [Suspect]
     Dosage: TOTAL DOSE ADMINISTERED 297 MG
  2. RITUXIMAB [Suspect]
     Dosage: TOTAL DOSE ADMINISTERED 618.8 MG

REACTIONS (7)
  - Pain [None]
  - Pyrexia [None]
  - Mobility decreased [None]
  - Pain in extremity [None]
  - Hyperaesthesia [None]
  - Leukocytosis [None]
  - Spinal column stenosis [None]
